FAERS Safety Report 24969117 (Version 1)
Quarter: 2025Q1

REPORT INFORMATION
  Report Type: Report from Study
  Country: US (occurrence: US)
  Receive Date: 20250214
  Receipt Date: 20250214
  Transmission Date: 20250409
  Serious: No
  Sender: AMNEAL
  Company Number: US-AMNEAL PHARMACEUTICALS-2024-AMRX-00460

PATIENT
  Sex: Female
  Weight: 45.351 kg

DRUGS (2)
  1. CARBIDOPA\LEVODOPA [Concomitant]
     Active Substance: CARBIDOPA\LEVODOPA
     Indication: Product used for unknown indication
     Route: 065
  2. CARBIDOPA\LEVODOPA [Suspect]
     Active Substance: CARBIDOPA\LEVODOPA
     Indication: Parkinson^s disease
     Dosage: 48.75/195MG, 1 CAPSULES, 5X/DAY
     Route: 048

REACTIONS (3)
  - Symptom recurrence [Unknown]
  - Product use issue [Unknown]
  - Product dose omission issue [Unknown]
